FAERS Safety Report 17629204 (Version 2)
Quarter: 2020Q2

REPORT INFORMATION
  Report Type: Spontaneous
  Country: US (occurrence: US)
  Receive Date: 20200406
  Receipt Date: 20200515
  Transmission Date: 20200713
  Serious: No
  Sender: FDA-Public Use
  Company Number: US-GLAXOSMITHKLINE-US2020058330

PATIENT
  Sex: Male
  Weight: 69.39 kg

DRUGS (1)
  1. TRELEGY ELLIPTA [Suspect]
     Active Substance: FLUTICASONE FUROATE\UMECLIDINIUM BROMIDE\VILANTEROL TRIFENATATE
     Indication: CHRONIC OBSTRUCTIVE PULMONARY DISEASE
     Dosage: 2 PUFF(S), QD
     Route: 065
     Dates: start: 20200402

REACTIONS (4)
  - Drug ineffective [Unknown]
  - Prescribed overdose [Unknown]
  - Throat irritation [Recovered/Resolved]
  - Glossitis [Recovered/Resolved]
